FAERS Safety Report 5113281-6 (Version None)
Quarter: 2006Q3

REPORT INFORMATION
  Report Type: 
  Country: None (occurrence: None)
  Receive Date: 20060920
  Receipt Date: 20060908
  Transmission Date: 20061208
  Serious: Yes (Hospitalization, Other)
  Sender: FDA-Public Use
  Company Number: 229650

PATIENT
  Age: 54 Year
  Sex: Male

DRUGS (11)
  1. AVASTIN [Suspect]
     Indication: ADENOCARCINOMA PANCREAS
     Dosage: 10 MG/KG, INTRAVENOUS
     Route: 042
     Dates: start: 20060729
  2. GEMCITABINE [Suspect]
     Indication: ADENOCARCINOMA PANCREAS
     Dosage: 400 MG/M2, INTRAVENOUS
     Route: 042
     Dates: start: 20060729
  3. ALTACE [Concomitant]
  4. AMBIEN [Concomitant]
  5. CLARINEX [Concomitant]
  6. COMPAZINE [Concomitant]
  7. NEXIUM [Concomitant]
  8. SENOKOT [Concomitant]
  9. SINGULAIR [Concomitant]
  10. WELLBUTRIN [Concomitant]
  11. ZOFRAN [Concomitant]

REACTIONS (7)
  - ALANINE AMINOTRANSFERASE INCREASED [None]
  - BLOOD ALKALINE PHOSPHATASE INCREASED [None]
  - BLOOD BILIRUBIN INCREASED [None]
  - BLOOD LACTATE DEHYDROGENASE INCREASED [None]
  - HAEMOGLOBIN DECREASED [None]
  - RED BLOOD CELL COUNT DECREASED [None]
  - STENT OCCLUSION [None]
